FAERS Safety Report 6578088-1 (Version None)
Quarter: 2010Q1

REPORT INFORMATION
  Report Type: 
  Country: None (occurrence: None)
  Receive Date: 20100211
  Receipt Date: 20100202
  Transmission Date: 20100710
  Serious: Yes (Other)
  Sender: FDA-Public Use
  Company Number: CA-JNJCH-2010002732

PATIENT
  Age: 43 Year
  Sex: Female

DRUGS (1)
  1. LUBRIDERM SENSITIVE MOISTURE [Suspect]
     Indication: ECZEMA ASTEATOTIC
     Dosage: TEXT:UNKNOWN
     Route: 061

REACTIONS (10)
  - APPLICATION SITE ERYTHEMA [None]
  - APPLICATION SITE PAIN [None]
  - APPLICATION SITE PRURITUS [None]
  - APPLICATION SITE RASH [None]
  - DRY SKIN [None]
  - INFECTION [None]
  - SCAR [None]
  - SKIN EXFOLIATION [None]
  - SLEEP DISORDER [None]
  - WOUND [None]
